FAERS Safety Report 9868855 (Version 4)
Quarter: 2014Q1

REPORT INFORMATION
  Report Type: Spontaneous
  Country: US (occurrence: US)
  Receive Date: 20140204
  Receipt Date: 20140307
  Transmission Date: 20141002
  Serious: No
  Sender: FDA-Public Use
  Company Number: US-GILEAD-2014-0093672

PATIENT
  Sex: Male

DRUGS (3)
  1. LETAIRIS [Suspect]
     Indication: PRODUCT USED FOR UNKNOWN INDICATION
     Dosage: 10 MG, QD
     Route: 048
     Dates: start: 20130617
  2. VELETRI [Suspect]
  3. ADCIRCA [Concomitant]

REACTIONS (12)
  - Diarrhoea [Unknown]
  - Pain in jaw [Unknown]
  - Decreased appetite [Unknown]
  - Cough [Recovering/Resolving]
  - Upper respiratory tract infection [Unknown]
  - Nasopharyngitis [Unknown]
  - Vomiting [Unknown]
  - Fatigue [Unknown]
  - Dyspnoea exertional [Unknown]
  - Flushing [Unknown]
  - Nasal congestion [Unknown]
  - Headache [Unknown]
